FAERS Safety Report 4389459-6 (Version None)
Quarter: 2004Q3

REPORT INFORMATION
  Report Type: 
  Country: None (occurrence: None)
  Receive Date: 20040702
  Receipt Date: 20040226
  Transmission Date: 20050211
  Serious: Yes (Other)
  Sender: FDA-Public Use
  Company Number: PHBS2004IL02826

PATIENT
  Age: 37 Year
  Sex: Male
  Weight: 84 kg

DRUGS (3)
  1. SANDOSTATIN LAR [Suspect]
     Indication: ACROMEGALY
     Dosage: 30 MG ONCE IN 28 DAYS
     Dates: start: 20031001, end: 20040201
  2. SANDOSTATIN LAR [Suspect]
     Dosage: 20 MG ONCE IN 28 DAYS
  3. PARILAC [Concomitant]
     Dosage: 2.5 MG/D
     Route: 065

REACTIONS (3)
  - BLOOD CHOLESTEROL INCREASED [None]
  - BLOOD TRIGLYCERIDES INCREASED [None]
  - HYPERLIPIDAEMIA [None]
